FAERS Safety Report 25454500 (Version 2)
Quarter: 2025Q3

REPORT INFORMATION
  Report Type: Spontaneous
  Country: US (occurrence: US)
  Receive Date: 20250619
  Receipt Date: 20250715
  Transmission Date: 20251021
  Serious: No
  Sender: ALVOGEN
  Company Number: US-ALVOGEN-2025098169

PATIENT
  Sex: Female

DRUGS (1)
  1. LEVOTHYROXINE SODIUM [Suspect]
     Active Substance: LEVOTHYROXINE SODIUM
     Indication: Thyroid hormone replacement therapy
     Dosage: 112 MCG ONCE A DAY IN MORNING WITH A SIP OF WATER AND NO FOOD FOR 30 MINS
     Dates: start: 2025

REACTIONS (4)
  - Feeling abnormal [Recovered/Resolved]
  - Weight increased [Unknown]
  - Sleep disorder [Recovered/Resolved]
  - Dysphagia [Recovered/Resolved]
